FAERS Safety Report 14700034 (Version 1)
Quarter: 2018Q1

REPORT INFORMATION
  Report Type: Spontaneous
  Country: US (occurrence: US)
  Receive Date: 20180330
  Receipt Date: 20180330
  Transmission Date: 20180509
  Serious: No
  Sender: FDA-Public Use
  Company Number: US-ZYDUS-018924

PATIENT
  Age: 13 Year
  Sex: Male

DRUGS (1)
  1. OSELTAMIVIR/OSELTAMIVIR PHOSPHATE [Suspect]
     Active Substance: OSELTAMIVIR PHOSPHATE
     Indication: INFLUENZA
     Dosage: 6 MG/ML SUSP
     Route: 048
     Dates: start: 20180106, end: 20180106

REACTIONS (7)
  - Abnormal behaviour [Recovered/Resolved]
  - Sleep talking [Not Recovered/Not Resolved]
  - Psychotic disorder [Recovered/Resolved]
  - Dysarthria [Recovered/Resolved]
  - Mydriasis [Recovered/Resolved]
  - Pyrexia [Recovered/Resolved]
  - Panic attack [Recovered/Resolved]

NARRATIVE: CASE EVENT DATE: 20180106
